FAERS Safety Report 26071077 (Version 1)
Quarter: 2025Q4

REPORT INFORMATION
  Report Type: Spontaneous
  Country: CA (occurrence: CA)
  Receive Date: 20251120
  Receipt Date: 20251120
  Transmission Date: 20260117
  Serious: Yes (Hospitalization, Other)
  Sender: PFIZER
  Company Number: CA-PFIZER INC-202500214548

PATIENT
  Age: 73 Year
  Sex: Male
  Weight: 82 kg

DRUGS (4)
  1. IXIFI [Suspect]
     Active Substance: INFLIXIMAB-QBTX
     Indication: Colitis ulcerative
     Dosage: 10 MG/KG, INDUCTION AT WEEK 0, 2 AND 6, THEN Q8WEEKS
     Route: 042
     Dates: start: 20250811
  2. IXIFI [Suspect]
     Active Substance: INFLIXIMAB-QBTX
     Dosage: 10 MG/KG, INDUCTION AT WEEK 0, 2 AND 6, THEN Q8WEEKS
     Route: 042
     Dates: start: 20250922
  3. IXIFI [Suspect]
     Active Substance: INFLIXIMAB-QBTX
     Dosage: 820 MG, EVERY 8 WEEKS
     Route: 042
     Dates: start: 20251117, end: 20251117
  4. IXIFI [Suspect]
     Active Substance: INFLIXIMAB-QBTX
     Dosage: 820 MG, EVERY 8 WEEKS
     Route: 042
     Dates: start: 20251117

REACTIONS (3)
  - Appendicectomy [Recovered/Resolved]
  - Infusion site swelling [Unknown]
  - Infusion site extravasation [Unknown]

NARRATIVE: CASE EVENT DATE: 20251110
